FAERS Safety Report 4561024-7 (Version None)
Quarter: 2005Q1

REPORT INFORMATION
  Report Type: 
  Country: None (occurrence: None)
  Receive Date: 20050126
  Receipt Date: 20040813
  Transmission Date: 20050727
  Serious: No
  Sender: FDA-Public Use
  Company Number: US-BRISTOL-MYERS SQUIBB COMPANY-12670626

PATIENT
  Age: 71 Year
  Sex: Female
  Weight: 109 kg

DRUGS (17)
  1. GLUCOPHAGE [Suspect]
     Indication: DIABETES MELLITUS
     Dosage: DURATION OF THERAPY:  ^7-8 YEARS^
     Route: 048
  2. CARAFATE [Concomitant]
  3. TOPROL-XL [Concomitant]
  4. FLAGYL [Concomitant]
  5. SYNTHROID [Concomitant]
  6. COZAAR [Concomitant]
  7. COENZYME Q10 [Concomitant]
  8. BEXTRA [Concomitant]
     Dosage: DISCONTINUED THREE WEEKS AGO
  9. ZETIA [Concomitant]
     Dosage: DISCONTINUED THREE WEEKS AGO
  10. MULTIVITAMIN [Concomitant]
     Dosage: DISCONTINUED THREE WEEKS AGO
  11. VITAMIN C AND E [Concomitant]
     Dosage: DISCONTINUED THREE WEEKS AGO
  12. OS-CAL [Concomitant]
     Dosage: DISCONTINUED THREE WEEKS AGO
  13. NEXIUM [Concomitant]
     Dosage: DISCONTINUED THREE WEEKS AGO
  14. GLUCOSAMINE [Concomitant]
     Dosage: DISCONTINUED THREE WEEKS AGO
  15. LIPITOR [Concomitant]
     Dosage: DISCONTINUED THREE WEEKS AGO
  16. PAXIL [Concomitant]
     Dosage: DISCONTINUED THREE WEEKS AGO
  17. ASPIRIN [Concomitant]
     Dosage: DISCONTINUED THREE WEEKS AGO

REACTIONS (7)
  - ABDOMINAL PAIN [None]
  - DIARRHOEA [None]
  - DUODENAL ULCER [None]
  - GASTRITIS [None]
  - OESOPHAGITIS [None]
  - PEPTIC ULCER [None]
  - VOMITING [None]
